FAERS Safety Report 14259373 (Version 1)
Quarter: 2017Q4

REPORT INFORMATION
  Report Type: Spontaneous
  Country: AU (occurrence: AU)
  Receive Date: 20171207
  Receipt Date: 20171207
  Transmission Date: 20180321
  Serious: Yes (Other)
  Sender: FDA-Public Use
  Company Number: AU-APOTEX-2017AP022075

PATIENT
  Age: 30 Year
  Sex: Female

DRUGS (2)
  1. SODIUM NITROPRUSSIDE. [Concomitant]
     Active Substance: SODIUM NITROPRUSSIDE
     Indication: BLOOD PRESSURE INCREASED
     Route: 042
  2. ACETAMINOPHEN. [Suspect]
     Active Substance: ACETAMINOPHEN
     Indication: ANALGESIC THERAPY
     Route: 048

REACTIONS (7)
  - Toxicity to various agents [Recovered/Resolved]
  - Acute hepatic failure [None]
  - Platelet count decreased [None]
  - Wound haematoma [None]
  - Coagulopathy [None]
  - Blood pressure increased [None]
  - Acute kidney injury [None]
